FAERS Safety Report 5299643-5 (Version None)
Quarter: 2007Q1

REPORT INFORMATION
  Report Type: 
  Country: None (occurrence: None)
  Receive Date: 20070201
  Receipt Date: 20061102
  Transmission Date: 20070707
  Serious: No
  Sender: FDA-Public Use
  Company Number: 2006PV024439

PATIENT
  Age: 70 Year
  Sex: Female
  Weight: 156.491 kg

DRUGS (4)
  1. BYETTA [Suspect]
     Indication: DIABETES MELLITUS NON-INSULIN-DEPENDENT
     Dosage: 5 MCG;BID;SC
     Route: 058
     Dates: start: 20061008
  2. HUMULIN N [Concomitant]
  3. HUMALOG [Concomitant]
  4. SYMLIN [Concomitant]

REACTIONS (8)
  - ERYTHEMA OF EYELID [None]
  - EYE PRURITUS [None]
  - HEADACHE [None]
  - INSOMNIA [None]
  - NAUSEA [None]
  - THIRST DECREASED [None]
  - VISUAL DISTURBANCE [None]
  - WEIGHT DECREASED [None]
